FAERS Safety Report 14347401 (Version 1)
Quarter: 2018Q1

REPORT INFORMATION
  Report Type: Spontaneous
  Country: US (occurrence: US)
  Receive Date: 20180102
  Receipt Date: 20180102
  Transmission Date: 20180509
  Serious: No
  Sender: FDA-Public Use
  Company Number: None

PATIENT
  Sex: Female

DRUGS (1)
  1. ZEJULA [Suspect]
     Active Substance: NIRAPARIB
     Indication: OVARIAN CANCER
     Dates: start: 20150401

REACTIONS (10)
  - Upper limb fracture [None]
  - Platelet count decreased [None]
  - Nephrolithiasis [None]
  - Insomnia [None]
  - Vomiting [None]
  - Mobility decreased [None]
  - Dehydration [None]
  - Constipation [None]
  - Nausea [None]
  - Malaise [None]
